FAERS Safety Report 9413060 (Version 2)
Quarter: 2013Q4

REPORT INFORMATION
  Report Type: Spontaneous
  Country: MT (occurrence: MT)
  Receive Date: 20130722
  Receipt Date: 20131001
  Transmission Date: 20140711
  Serious: Yes (Hospitalization)
  Sender: FDA-Public Use
  Company Number: MT-GLAXOSMITHKLINE-B0909237A

PATIENT
  Age: 78 Year
  Sex: Female

DRUGS (4)
  1. WELLBUTRIN XR [Suspect]
     Indication: DEPRESSIVE SYMPTOM
     Dosage: 150MG PER DAY
  2. WELLBUTRIN XR [Suspect]
     Indication: DEPRESSIVE SYMPTOM
     Dosage: 300MG PER DAY
  3. CHEMOTHERAPY [Concomitant]
     Indication: HAEMATOLOGICAL MALIGNANCY
  4. ESCITALOPRAM [Concomitant]

REACTIONS (1)
  - Transient global amnesia [Recovered/Resolved]
